FAERS Safety Report 6662638-0 (Version None)
Quarter: 2010Q1

REPORT INFORMATION
  Report Type: 
  Country: None (occurrence: None)
  Receive Date: 20100329
  Receipt Date: 20100317
  Transmission Date: 20100710
  Serious: Yes (Hospitalization)
  Sender: FDA-Public Use
  Company Number: 1000012666

PATIENT
  Age: 88 Year
  Sex: Female

DRUGS (3)
  1. MEMANTINE HCL [Suspect]
     Dosage: 10 MG (10 MG,  1 IN 1 D), ORAL
     Route: 048
     Dates: start: 20091208, end: 20091222
  2. MEMANTINE HCL [Suspect]
     Dosage: ORAL
     Route: 048
  3. MODOPAR [Concomitant]

REACTIONS (1)
  - EYELID OEDEMA [None]
